FAERS Safety Report 7774482-1 (Version None)
Quarter: 2011Q3

REPORT INFORMATION
  Report Type: 
  Country: None (occurrence: None)
  Receive Date: 20110923
  Receipt Date: 20110913
  Transmission Date: 20111222
  Serious: Yes (Other)
  Sender: FDA-Public Use
  Company Number: CA-JNJFOC-20110906749

PATIENT
  Sex: Female
  Weight: 61.8 kg

DRUGS (4)
  1. PENTASA [Concomitant]
  2. REMICADE [Suspect]
     Indication: CROHN'S DISEASE
     Route: 042
     Dates: start: 20080501
  3. PRILOSEC [Concomitant]
  4. METHOTREXATE [Concomitant]

REACTIONS (1)
  - ARTHROPOD BITE [None]
